FAERS Safety Report 16128804 (Version 2)
Quarter: 2019Q2

REPORT INFORMATION
  Report Type: Spontaneous
  Country: US (occurrence: US)
  Receive Date: 20190328
  Receipt Date: 20190408
  Transmission Date: 20190711
  Serious: Yes (Life-Threatening, Other)
  Sender: FDA-Public Use
  Company Number: US-JNJFOC-20190339043

PATIENT
  Sex: Male
  Weight: 83 kg

DRUGS (2)
  1. DOXORUBICIN HYDROCHLORIDE. [Suspect]
     Active Substance: DOXORUBICIN HYDROCHLORIDE
     Indication: LEUKAEMIA
     Route: 065
  2. ADRIAMYCIN [Suspect]
     Active Substance: DOXORUBICIN HYDROCHLORIDE
     Indication: LEUKAEMIA
     Route: 065

REACTIONS (5)
  - Cardiac failure [Unknown]
  - Cardiomyopathy [Unknown]
  - Product use in unapproved indication [Unknown]
  - Cardiotoxicity [Unknown]
  - Off label use [Unknown]
